FAERS Safety Report 7458265-8 (Version None)
Quarter: 2011Q2

REPORT INFORMATION
  Report Type: 
  Country: None (occurrence: None)
  Receive Date: 20110504
  Receipt Date: 20110426
  Transmission Date: 20111010
  Serious: Yes (Hospitalization)
  Sender: FDA-Public Use
  Company Number: JP-MERCK-1104USA03903

PATIENT

DRUGS (4)
  1. ACTOS [Concomitant]
     Dosage: DAILY DOSAGE UNKNOWN
     Route: 048
  2. METFORMIN HYDROCHLORIDE [Concomitant]
     Dosage: DAILY DOSAGE UNKNOWN
     Route: 048
  3. AMARYL [Concomitant]
     Dosage: DAILY DOSAGE UNKNOWN
     Route: 048
  4. JANUVIA [Suspect]
     Indication: BLOOD GLUCOSE ABNORMAL
     Route: 048
     Dates: start: 20110301, end: 20110301

REACTIONS (1)
  - GASTROINTESTINAL PERFORATION [None]
